FAERS Safety Report 20907377 (Version 1)
Quarter: 2022Q2

REPORT INFORMATION
  Report Type: Spontaneous
  Country: SI (occurrence: SI)
  Receive Date: 20220602
  Receipt Date: 20220602
  Transmission Date: 20220720
  Serious: Yes (Other)
  Sender: FDA-Public Use
  Company Number: SI-002147023-NVSC2022SI116822

PATIENT
  Age: 61 Year
  Sex: Female

DRUGS (4)
  1. PREGABALIN [Suspect]
     Active Substance: PREGABALIN
     Indication: Neuralgia
     Dosage: UNK
     Route: 065
     Dates: start: 200601
  2. TIZANIDINE [Suspect]
     Active Substance: TIZANIDINE
     Indication: Neuralgia
     Dosage: UNK
     Route: 065
     Dates: start: 200601
  3. ENALAPRIL [Suspect]
     Active Substance: ENALAPRIL
     Indication: Hypertension
     Dosage: UNK
     Route: 065
     Dates: start: 200611
  4. INTERFERON BETA-1B [Concomitant]
     Active Substance: INTERFERON BETA-1B
     Indication: Neuralgia
     Dosage: UNK
     Route: 065
     Dates: start: 200601

REACTIONS (4)
  - Neurological decompensation [Recovering/Resolving]
  - Product use in unapproved indication [Unknown]
  - Hypertension [Unknown]
  - Depression [Unknown]

NARRATIVE: CASE EVENT DATE: 20060101
